FAERS Safety Report 5766441-5 (Version None)
Quarter: 2008Q2

REPORT INFORMATION
  Report Type: 
  Country: None (occurrence: None)
  Receive Date: 20080611
  Receipt Date: 20080515
  Transmission Date: 20081010
  Serious: No
  Sender: FDA-Public Use
  Company Number: KR-BOEHRINGER INGELHEIM GMBH, GERMANY-2008-BP-08329SG

PATIENT
  Age: 54 Year
  Sex: Male

DRUGS (4)
  1. SPIRIVA [Suspect]
     Indication: CHRONIC OBSTRUCTIVE PULMONARY DISEASE
     Route: 055
     Dates: start: 20080311, end: 20080422
  2. HEDERAE HELIX FLUID EXT [Concomitant]
  3. AMBROXOL HYDROCHLORIDE + CLEBUTERAL HYDROCHLORIDE [Concomitant]
  4. STREPTODORNASE + STREPTOKINASE [Concomitant]

REACTIONS (2)
  - OCULAR HYPERAEMIA [None]
  - VISION BLURRED [None]
